FAERS Safety Report 7915982-0 (Version None)
Quarter: 2011Q4

REPORT INFORMATION
  Report Type: 
  Country: None (occurrence: None)
  Receive Date: 20111115
  Receipt Date: 20111031
  Transmission Date: 20120403
  Serious: Yes (Other)
  Sender: FDA-Public Use
  Company Number: US-WATSON-2011-19102

PATIENT
  Age: 81 Year
  Sex: Male

DRUGS (2)
  1. PROPAFENONE HCL [Suspect]
     Indication: ATRIAL FIBRILLATION
     Dosage: 150 MG, SINGLE
     Route: 048
  2. QUINIDINE SULFATE [Suspect]
     Indication: ATRIAL FIBRILLATION
     Dosage: 324 MG TABLETS

REACTIONS (4)
  - ARRHYTHMIA [None]
  - DIZZINESS [None]
  - SYNCOPE [None]
  - DRUG INTERACTION [None]
